FAERS Safety Report 4673015-6 (Version None)
Quarter: 2005Q2

REPORT INFORMATION
  Report Type: 
  Country: None (occurrence: None)
  Receive Date: 20050524
  Receipt Date: 20050519
  Transmission Date: 20051028
  Serious: Yes (Death)
  Sender: FDA-Public Use
  Company Number: 2005S1002662

PATIENT
  Age: 78 Year
  Sex: Female
  Weight: 84.8226 kg

DRUGS (7)
  1. CLOZAPINE [Suspect]
     Indication: SCHIZOPHRENIA
     Dosage: 100 MG HS PO
     Route: 048
     Dates: start: 20011101, end: 20050301
  2. INSULIN [Concomitant]
  3. METFORMIN HCL [Concomitant]
  4. VITAMIN E [Concomitant]
  5. DOCUSATE SODIUM [Concomitant]
  6. ATORVASTATIN CALCIUM [Concomitant]
  7. LISINOPRIL [Concomitant]

REACTIONS (2)
  - NEOPLASM MALIGNANT [None]
  - SMALL INTESTINAL OBSTRUCTION [None]
